FAERS Safety Report 24219717 (Version 1)
Quarter: 2024Q3

REPORT INFORMATION
  Report Type: Spontaneous
  Country: IT (occurrence: IT)
  Receive Date: 20240817
  Receipt Date: 20240817
  Transmission Date: 20241017
  Serious: Yes (Hospitalization)
  Sender: AUROBINDO
  Company Number: IT-MINISAL02-998042

PATIENT
  Age: 1 Month
  Sex: Female

DRUGS (1)
  1. ACETAMINOPHEN [Suspect]
     Active Substance: ACETAMINOPHEN
     Indication: Product used for unknown indication
     Dosage: 250 MILLIGRAM (ADMINISTERED 250 MG IV INSTEAD OF 25 MG IV.)
     Route: 042
     Dates: start: 20240612, end: 20240612

REACTIONS (1)
  - Product administration error [Recovered/Resolved]

NARRATIVE: CASE EVENT DATE: 20240612
